FAERS Safety Report 5009363-X (Version None)
Quarter: 2006Q2

REPORT INFORMATION
  Report Type: 
  Country: None (occurrence: None)
  Receive Date: 20060522
  Receipt Date: 20060509
  Transmission Date: 20061013
  Serious: Yes (Death, Other)
  Sender: FDA-Public Use
  Company Number: 2006022794

PATIENT
  Age: 61 Year
  Sex: Male
  Weight: 117.4816 kg

DRUGS (1)
  1. CELEBREX [Suspect]
     Indication: PAIN
     Dates: start: 20030801, end: 20040904

REACTIONS (1)
  - MYOCARDIAL INFARCTION [None]
